APPROVED DRUG PRODUCT: LANSOPRAZOLE
Active Ingredient: LANSOPRAZOLE
Strength: 30MG
Dosage Form/Route: TABLET, ORALLY DISINTEGRATING, DELAYED RELEASE;ORAL
Application: A078730 | Product #002
Applicant: ANI PHARMACEUTICALS INC
Approved: Oct 15, 2010 | RLD: No | RS: No | Type: DISCN